FAERS Safety Report 11282128 (Version 1)
Quarter: 2015Q3

REPORT INFORMATION
  Report Type: Spontaneous
  Country: IT (occurrence: IT)
  Receive Date: 20150719
  Receipt Date: 20150719
  Transmission Date: 20151125
  Serious: Yes (Hospitalization)
  Sender: FDA-Public Use
  Company Number: PHHY2015IT082057

PATIENT
  Sex: Male

DRUGS (2)
  1. CANNABIS [Suspect]
     Active Substance: CANNABIS SATIVA SUBSP. INDICA TOP
     Indication: PERFORMANCE STATUS DECREASED
     Dosage: UNK
     Route: 065
  2. METHYLPHENIDATE. [Suspect]
     Active Substance: METHYLPHENIDATE
     Indication: PERFORMANCE STATUS DECREASED
     Dosage: UPTO 120 MG, QD
     Route: 065

REACTIONS (5)
  - Aggression [Unknown]
  - Abnormal behaviour [Unknown]
  - Delusion [Unknown]
  - Grandiosity [Unknown]
  - Mania [Unknown]
